FAERS Safety Report 18457005 (Version 1)
Quarter: 2020Q4

REPORT INFORMATION
  Report Type: Spontaneous
  Country: US (occurrence: US)
  Receive Date: 20201102
  Receipt Date: 20201102
  Transmission Date: 20210114
  Serious: Yes (Hospitalization)
  Sender: FDA-Public Use
  Company Number: None

PATIENT
  Age: 3 Year
  Sex: Male
  Weight: 15 kg

DRUGS (3)
  1. CYCLOPHOSPHAMIDE. [Suspect]
     Active Substance: CYCLOPHOSPHAMIDE
     Dates: end: 20191208
  2. MESNA. [Suspect]
     Active Substance: MESNA
     Dates: end: 20191208
  3. THIOTEPA. [Suspect]
     Active Substance: THIOTEPA
     Dates: end: 20191205

REACTIONS (11)
  - Acute kidney injury [None]
  - Respiratory distress [None]
  - Pulmonary hypertension [None]
  - Pulmonary haemorrhage [None]
  - Protein total increased [None]
  - Blood creatine increased [None]
  - Thrombotic microangiopathy [None]
  - Condition aggravated [None]
  - Hypervolaemia [None]
  - Pleural effusion [None]
  - Cardiomegaly [None]

NARRATIVE: CASE EVENT DATE: 20200113
